FAERS Safety Report 22632417 (Version 1)
Quarter: 2023Q2

REPORT INFORMATION
  Report Type: Spontaneous
  Country: IT (occurrence: IT)
  Receive Date: 20230623
  Receipt Date: 20230623
  Transmission Date: 20230722
  Serious: Yes (Hospitalization)
  Sender: FDA-Public Use
  Company Number: None

PATIENT
  Age: 43 Year
  Sex: Male

DRUGS (2)
  1. OLANZAPINE [Suspect]
     Active Substance: OLANZAPINE
     Indication: Drug abuse
     Dosage: 14 DOSAGE FORM, TOTAL (DOSAGGIO: 14UNITA DI MISURA: UNITA POSOLOGICA FREQUENZA SOMMINISTRAZIONE: TOT
     Route: 048
     Dates: start: 20230606, end: 20230606
  2. EN [Suspect]
     Active Substance: DELORAZEPAM
     Indication: Drug abuse
     Dosage: UNK (UNITA DI MISURA: GOCCEFREQUENZA SOMMINISTRAZIONE: TOTALE VIA SOMMINISTRAZIONE: ORALE)
     Route: 048
     Dates: start: 20230506, end: 20230606

REACTIONS (3)
  - Sopor [Unknown]
  - Restlessness [Unknown]
  - Drug abuse [Unknown]

NARRATIVE: CASE EVENT DATE: 20230606
